FAERS Safety Report 23502187 (Version 1)
Quarter: 2024Q1

REPORT INFORMATION
  Report Type: Spontaneous
  Country: FR (occurrence: FR)
  Receive Date: 20240208
  Receipt Date: 20240208
  Transmission Date: 20240410
  Serious: Yes (Other)
  Sender: FDA-Public Use
  Company Number: None

PATIENT
  Age: 79 Year
  Sex: Female
  Weight: 37 kg

DRUGS (3)
  1. CEFTRIAXONE [Suspect]
     Active Substance: CEFTRIAXONE\CEFTRIAXONE SODIUM
     Indication: Escherichia infection
     Dosage: BASE
     Route: 042
     Dates: start: 20230414, end: 20230417
  2. CLAVULANIC ACID [Suspect]
     Active Substance: CLAVULANIC ACID
     Indication: Escherichia infection
     Dosage: UNSPECIFIED
     Route: 048
     Dates: start: 20230418, end: 20230418
  3. AMOXICILLIN [Suspect]
     Active Substance: AMOXICILLIN
     Indication: Escherichia infection
     Dosage: 1 G X 3/D
     Route: 048
     Dates: start: 20230418, end: 20230424

REACTIONS (1)
  - Neutropenia [Recovered/Resolved]

NARRATIVE: CASE EVENT DATE: 20230424
